FAERS Safety Report 13104378 (Version 1)
Quarter: 2017Q1

REPORT INFORMATION
  Report Type: Spontaneous
  Country: US (occurrence: US)
  Receive Date: 20170110
  Receipt Date: 20170110
  Transmission Date: 20170428
  Serious: Yes (Other)
  Sender: FDA-Public Use
  Company Number: None

PATIENT
  Age: 52 Year
  Sex: Male
  Weight: 69.75 kg

DRUGS (3)
  1. OREGANO OIL [Concomitant]
  2. OSELTAMIVIR PHOSPHATE. [Suspect]
     Active Substance: OSELTAMIVIR PHOSPHATE
     Indication: INFLUENZA
     Dosage: ?          QUANTITY:10 CAPSULE(S);?
     Route: 048
  3. VITAMIN C [Suspect]
     Active Substance: ASCORBIC ACID

REACTIONS (1)
  - Vomiting [None]

NARRATIVE: CASE EVENT DATE: 20170110
